FAERS Safety Report 6054911-4 (Version None)
Quarter: 2009Q1

REPORT INFORMATION
  Report Type: 
  Country: None (occurrence: None)
  Receive Date: 20090128
  Receipt Date: 20090119
  Transmission Date: 20090719
  Serious: Yes (Hospitalization, Other)
  Sender: FDA-Public Use
  Company Number: PHHY2009FR02207

PATIENT
  Sex: Female

DRUGS (5)
  1. EXFORGE [Suspect]
     Indication: HYPERTENSION
     Dosage: UNK
     Route: 048
     Dates: start: 20081208
  2. IXPRIM [Suspect]
  3. LAMALINE [Suspect]
  4. COLCHIMAX [Concomitant]
  5. PLAVIX [Concomitant]

REACTIONS (5)
  - ANOREXIA [None]
  - BLOOD CREATININE INCREASED [None]
  - FALL [None]
  - RIB FRACTURE [None]
  - SOMNOLENCE [None]
